FAERS Safety Report 4939429-1 (Version None)
Quarter: 2006Q1

REPORT INFORMATION
  Report Type: 
  Country: None (occurrence: None)
  Receive Date: 20060310
  Receipt Date: 20060302
  Transmission Date: 20060701
  Serious: Yes (Death, Other)
  Sender: FDA-Public Use
  Company Number: US-NOVOPROD-251308

PATIENT

DRUGS (1)
  1. NOVOSEVEN [Suspect]
     Indication: HAEMORRHAGE

REACTIONS (2)
  - CONCOMITANT DISEASE PROGRESSION [None]
  - THERAPEUTIC RESPONSE DECREASED [None]
